FAERS Safety Report 5939464-0 (Version None)
Quarter: 2008Q4

REPORT INFORMATION
  Report Type: 
  Country: None (occurrence: None)
  Receive Date: 20081029
  Receipt Date: 20081014
  Transmission Date: 20090506
  Serious: Yes (Other)
  Sender: FDA-Public Use
  Company Number: 2008S1018605

PATIENT
  Age: 54 Year
  Sex: Female

DRUGS (3)
  1. MIRTAZAPINE [Suspect]
     Indication: DEPRESSION
     Dosage: 30 MG; DAILY; ORAL
     Route: 048
     Dates: start: 20080805
  2. NORFLOXACIN [Concomitant]
  3. THIAMINE HCL [Concomitant]

REACTIONS (4)
  - DISORIENTATION [None]
  - DIZZINESS [None]
  - DYSURIA [None]
  - PAIN [None]
